FAERS Safety Report 10235025 (Version 1)
Quarter: 2014Q2

REPORT INFORMATION
  Report Type: Report from Study
  Country: US (occurrence: US)
  Receive Date: 20140613
  Receipt Date: 20140613
  Transmission Date: 20141212
  Serious: Yes (Hospitalization)
  Sender: FDA-Public Use
  Company Number: PHEH2014US011703

PATIENT
  Sex: Female
  Weight: 58.96 kg

DRUGS (2)
  1. TASIGNA [Suspect]
     Indication: SOFT TISSUE SARCOMA
     Dosage: 300 MG, BID
     Route: 048
     Dates: start: 20140415
  2. TASIGNA [Suspect]
     Indication: OFF LABEL USE

REACTIONS (1)
  - Ammonia abnormal [Unknown]
